FAERS Safety Report 8421557-X (Version None)
Quarter: 2012Q2

REPORT INFORMATION
  Report Type: 
  Country: None (occurrence: None)
  Receive Date: 20120601
  Receipt Date: 20120522
  Transmission Date: 20120825
  Serious: Yes (Other)
  Sender: FDA-Public Use
  Company Number: 2012000126

PATIENT
  Age: 88 Year
  Sex: Male

DRUGS (3)
  1. ACEON [Suspect]
     Indication: CARDIAC DISORDER
     Dosage: 4MG, QD, ORAL, 1 DF, QOD, ORAL
     Route: 048
     Dates: start: 20040101
  2. EZETIMIBE/SIMVASTATIN [Suspect]
     Indication: HYPERTENSION
     Dosage: , ORAL
     Route: 048
     Dates: start: 20110101, end: 20120426
  3. CORDARONE [Suspect]
     Indication: PRODUCT USED FOR UNKNOWN INDICATION
     Dosage: DF, ORAL
     Route: 048

REACTIONS (3)
  - GAMMA-GLUTAMYLTRANSFERASE INCREASED [None]
  - ALANINE AMINOTRANSFERASE INCREASED [None]
  - ASPARTATE AMINOTRANSFERASE INCREASED [None]
